FAERS Safety Report 11788793 (Version 1)
Quarter: 2015Q4

REPORT INFORMATION
  Report Type: Spontaneous
  Country: CA (occurrence: CA)
  Receive Date: 20151201
  Receipt Date: 20151201
  Transmission Date: 20160305
  Serious: Yes (Other)
  Sender: FDA-Public Use
  Company Number: CA-SUN PHARMACEUTICAL INDUSTRIES LTD-2015US-106911

PATIENT
  Age: 48 Year
  Sex: Male

DRUGS (1)
  1. TEMOZOLOMIDE. [Suspect]
     Active Substance: TEMOZOLOMIDE
     Indication: GLIOBLASTOMA
     Dosage: NINE CYCLES
     Route: 065

REACTIONS (3)
  - Disease progression [Recovering/Resolving]
  - Metastasis [Recovering/Resolving]
  - Drug ineffective [Recovering/Resolving]
